FAERS Safety Report 8390368-6 (Version None)
Quarter: 2012Q1

REPORT INFORMATION
  Report Type: 
  Country: None (occurrence: None)
  Receive Date: 20120323
  Receipt Date: 20110309
  Transmission Date: 20120608
  Serious: Yes (Disabling)
  Sender: FDA-Public Use
  Company Number: 163-21880-11031281

PATIENT
  Age: 49 Year
  Sex: Female

DRUGS (4)
  1. ADVAIR HFA [Concomitant]
  2. TOPROL-XL [Concomitant]
  3. LASIX [Concomitant]
  4. REVLIMID [Suspect]
     Indication: MULTIPLE MYELOMA
     Dosage: 25 MG, 1 IN 1 D, PO
     Route: 048
     Dates: start: 20110221

REACTIONS (3)
  - DIARRHOEA [None]
  - NAUSEA [None]
  - FATIGUE [None]
